FAERS Safety Report 22706307 (Version 3)
Quarter: 2024Q1

REPORT INFORMATION
  Report Type: Spontaneous
  Country: EC (occurrence: EC)
  Receive Date: 20230714
  Receipt Date: 20240207
  Transmission Date: 20240410
  Serious: Yes (Other)
  Sender: FDA-Public Use
  Company Number: EC-PFIZER INC-PV202300122014

PATIENT
  Age: 12 Year
  Sex: Male

DRUGS (3)
  1. SOMATROPIN [Suspect]
     Active Substance: SOMATROPIN
     Dosage: UNK
     Route: 058
     Dates: start: 20210609
  2. SOMATROPIN [Suspect]
     Active Substance: SOMATROPIN
     Dosage: 1.2 (NO UNITS REPORTED).
     Route: 058
  3. SOMATROPIN [Suspect]
     Active Substance: SOMATROPIN
     Dosage: MIDDLE OF 1.2 AND 1.5 (NO UNITS REPORTED).
     Route: 058

REACTIONS (2)
  - Benign neoplasm [Unknown]
  - Epididymal cyst [Unknown]
